FAERS Safety Report 20222143 (Version 1)
Quarter: 2021Q4

REPORT INFORMATION
  Report Type: Spontaneous
  Country: US (occurrence: None)
  Receive Date: 20211222
  Receipt Date: 20211222
  Transmission Date: 20220303
  Serious: No
  Sender: FDA-Public Use
  Company Number: None

PATIENT
  Age: 63 Year
  Sex: Female

DRUGS (1)
  1. CAPECITABINE [Suspect]
     Active Substance: CAPECITABINE
     Dosage: OTHER QUANTITY : 150MF;?FREQUENCY : TWICE A DAY;?
     Route: 048

REACTIONS (2)
  - Foot fracture [None]
  - COVID-19 [None]

NARRATIVE: CASE EVENT DATE: 20211123
